FAERS Safety Report 9293430 (Version 1)
Quarter: 2013Q2

REPORT INFORMATION
  Report Type: Spontaneous
  Country: US (occurrence: US)
  Receive Date: 20130517
  Receipt Date: 20130517
  Transmission Date: 20140414
  Serious: No
  Sender: FDA-Public Use
  Company Number: US-009507513-1305USA007557

PATIENT
  Sex: 0

DRUGS (2)
  1. EMEND FOR INJECTION [Suspect]
  2. IFOSFAMIDE [Concomitant]

REACTIONS (1)
  - Nausea [Unknown]
